FAERS Safety Report 8901035 (Version 1)
Quarter: 2012Q4

REPORT INFORMATION
  Report Type: 
  Country: CN (occurrence: CN)
  Receive Date: 20121109
  Receipt Date: 20121109
  Transmission Date: 20130627
  Serious: Yes (Other)
  Sender: FDA-Public Use
  Company Number: CN-BRISTOL-MYERS SQUIBB COMPANY-17086745

PATIENT

DRUGS (1)
  1. BARACLUDE [Suspect]

REACTIONS (2)
  - Loss of consciousness [Unknown]
  - Alanine aminotransferase increased [Unknown]
